FAERS Safety Report 18058668 (Version 1)
Quarter: 2020Q3

REPORT INFORMATION
  Report Type: Report from Study
  Country: CA (occurrence: CA)
  Receive Date: 20200723
  Receipt Date: 20200723
  Transmission Date: 20201103
  Serious: Yes (Other)
  Sender: FDA-Public Use
  Company Number: CA-ACCORD-191464

PATIENT
  Sex: Female

DRUGS (9)
  1. AMLODIPINE [Suspect]
     Active Substance: AMLODIPINE BESYLATE
     Indication: PRODUCT USED FOR UNKNOWN INDICATION
     Route: 065
  2. FUROSEMIDE. [Concomitant]
     Active Substance: FUROSEMIDE
  3. OMEGA?3 TRIGLYCERIDES [Concomitant]
     Active Substance: OMEGA-3 FATTY ACIDS
  4. RITUXIMAB. [Suspect]
     Active Substance: RITUXIMAB
     Indication: GLOMERULOSCLEROSIS
     Dosage: 1 EVERY 1 DAYS
     Route: 041
  5. PREDNISONE. [Concomitant]
     Active Substance: PREDNISONE
  6. CICLOSPORIN [Concomitant]
     Active Substance: CYCLOSPORINE
  7. AMLODIPINE [Concomitant]
     Active Substance: AMLODIPINE BESYLATE
  8. RAMIPRIL. [Concomitant]
     Active Substance: RAMIPRIL
  9. LEVOTHYROXINE. [Concomitant]
     Active Substance: LEVOTHYROXINE

REACTIONS (7)
  - Infusion related reaction [Not Recovered/Not Resolved]
  - Fatigue [Not Recovered/Not Resolved]
  - Blood pressure diastolic abnormal [Not Recovered/Not Resolved]
  - Lethargy [Not Recovered/Not Resolved]
  - Intentional product use issue [Unknown]
  - Oedema peripheral [Not Recovered/Not Resolved]
  - Blood pressure increased [Not Recovered/Not Resolved]
